FAERS Safety Report 10743520 (Version 5)
Quarter: 2015Q2

REPORT INFORMATION
  Report Type: Report from Study
  Country: US (occurrence: US)
  Receive Date: 20150128
  Receipt Date: 20150408
  Transmission Date: 20150821
  Serious: Yes (Hospitalization)
  Sender: FDA-Public Use
  Company Number: US-ACTELION-A-US2015-111452

PATIENT
  Age: 41 Year
  Sex: Male

DRUGS (6)
  1. TRACLEER [Suspect]
     Active Substance: BOSENTAN\BOSENTAN MONOHYDRATE
     Indication: PULMONARY ARTERIAL HYPERTENSION
     Dosage: 125 MG, BID
     Route: 048
  2. ADCIRCA [Concomitant]
     Active Substance: TADALAFIL
     Dosage: 40 MG, QD
  3. REMODULIN [Suspect]
     Active Substance: TREPROSTINIL
     Dosage: UNK
     Route: 042
  4. REMODULIN [Suspect]
     Active Substance: TREPROSTINIL
     Indication: PULMONARY ARTERIAL HYPERTENSION
     Dosage: UNK
     Route: 058
  5. COUMADIN [Concomitant]
     Active Substance: WARFARIN SODIUM
  6. TYVASO [Concomitant]
     Active Substance: TREPROSTINIL

REACTIONS (12)
  - Catheter site discharge [Unknown]
  - Catheter site dermatitis [Unknown]
  - Skin irritation [Unknown]
  - Infusion site pain [Recovering/Resolving]
  - Device related infection [Unknown]
  - Malabsorption from injection site [Recovering/Resolving]
  - Miliaria [Unknown]
  - Dermatitis contact [Unknown]
  - Catheter site related reaction [Recovering/Resolving]
  - Infusion site oedema [Recovering/Resolving]
  - Catheter site extravasation [Unknown]
  - Catheter site erythema [Unknown]
